FAERS Safety Report 4447221-X (Version None)
Quarter: 2004Q3

REPORT INFORMATION
  Report Type: 
  Country: None (occurrence: None)
  Receive Date: 20040908
  Receipt Date: 20040908
  Transmission Date: 20050211
  Serious: Yes (Death)
  Sender: FDA-Public Use
  Company Number: None

PATIENT
  Sex: Male
  Weight: 197.4 kg

DRUGS (1)
  1. GEMCITABINE [Suspect]
     Indication: PANCREATIC CARCINOMA
     Dosage: 1500 MG/M2   Q WK X 3   INTRAVENOUS
     Route: 042
     Dates: start: 20040702, end: 20040813

REACTIONS (2)
  - ASCITES [None]
  - DISEASE PROGRESSION [None]
